FAERS Safety Report 5454243-9 (Version None)
Quarter: 2007Q3

REPORT INFORMATION
  Report Type: 
  Country: None (occurrence: None)
  Receive Date: 20070802
  Receipt Date: 20070523
  Transmission Date: 20080115
  Serious: Yes (Other)
  Sender: FDA-Public Use
  Company Number: WWISSUE-85

PATIENT
  Age: 63 Year
  Sex: Male

DRUGS (1)
  1. ISONIAZID/RIFAMPIN CAPSULES, 300/150MG; WEST-WARD [Suspect]
     Indication: TUBERCULOSIS
     Dosage: ORAL
     Route: 048
     Dates: start: 20060830, end: 20070228

REACTIONS (1)
  - ERECTILE DYSFUNCTION [None]
